FAERS Safety Report 13717522 (Version 1)
Quarter: 2017Q3

REPORT INFORMATION
  Report Type: Spontaneous
  Country: US (occurrence: US)
  Receive Date: 20170705
  Receipt Date: 20170705
  Transmission Date: 20171127
  Serious: No
  Sender: FDA-Public Use
  Company Number: US-GLAXOSMITHKLINE-US2017101285

PATIENT
  Sex: Male

DRUGS (3)
  1. ADVAIR DISKUS [Suspect]
     Active Substance: FLUTICASONE PROPIONATE\SALMETEROL XINAFOATE
     Indication: CHRONIC OBSTRUCTIVE PULMONARY DISEASE
     Dosage: 1 PUFF(S), BID
     Route: 055
     Dates: start: 20160718
  2. VENTOLIN [Concomitant]
     Active Substance: ALBUTEROL SULFATE
  3. AVAPRO [Concomitant]
     Active Substance: IRBESARTAN

REACTIONS (5)
  - Drug ineffective [Recovered/Resolved]
  - Product use issue [Unknown]
  - Product storage error [Unknown]
  - Wrong technique in device usage process [Unknown]
  - Intentional product misuse [Unknown]
